FAERS Safety Report 5469398-X (Version None)
Quarter: 2007Q3

REPORT INFORMATION
  Report Type: 
  Country: None (occurrence: None)
  Receive Date: 20070927
  Receipt Date: 20070912
  Transmission Date: 20080115
  Serious: Yes (Death)
  Sender: FDA-Public Use
  Company Number: DE-GENENTECH-245550

PATIENT
  Sex: Female
  Weight: 80 kg

DRUGS (6)
  1. XOLAIR [Suspect]
     Indication: ASTHMA
     Dosage: 450 MG, UNK
     Route: 058
     Dates: start: 20070503, end: 20070503
  2. XOLAIR [Suspect]
     Dosage: 300 MG, UNK
     Route: 058
     Dates: start: 20070516, end: 20070516
  3. XOLAIR [Suspect]
     Dosage: 450 MG, UNK
     Route: 058
     Dates: start: 20070530, end: 20070530
  4. XOLAIR [Suspect]
     Dosage: 300 MG, UNK
     Route: 058
     Dates: start: 20070614, end: 20070614
  5. XOLAIR [Suspect]
     Dosage: 450 MG, UNK
     Route: 058
     Dates: start: 20070628, end: 20070628
  6. XOLAIR [Suspect]
     Dosage: 300 MG, UNK
     Route: 058
     Dates: start: 20070711, end: 20070711

REACTIONS (6)
  - CIRCULATORY COLLAPSE [None]
  - DEATH [None]
  - HEADACHE [None]
  - INJECTION SITE PAIN [None]
  - NAUSEA [None]
  - VOMITING [None]
